FAERS Safety Report 6315417-8 (Version None)
Quarter: 2009Q3

REPORT INFORMATION
  Report Type: 
  Country: None (occurrence: None)
  Receive Date: 20090819
  Receipt Date: 20090814
  Transmission Date: 20100115
  Serious: Yes (Life-Threatening)
  Sender: FDA-Public Use
  Company Number: DE-SANOFI-SYNTHELABO-A04200901207

PATIENT
  Sex: Male

DRUGS (1)
  1. ELOXATIN [Suspect]
     Indication: DRUG USE FOR UNKNOWN INDICATION
     Route: 041
     Dates: start: 20090101, end: 20090101

REACTIONS (3)
  - RESPIRATORY ARREST [None]
  - SYNCOPE [None]
  - TACHYARRHYTHMIA [None]
